FAERS Safety Report 11668079 (Version 1)
Quarter: 2015Q4

REPORT INFORMATION
  Report Type: Spontaneous
  Country: JP (occurrence: JP)
  Receive Date: 20151027
  Receipt Date: 20151027
  Transmission Date: 20160304
  Serious: Yes (Hospitalization)
  Sender: FDA-Public Use
  Company Number: JP-ELI_LILLY_AND_COMPANY-JP201509005857

PATIENT
  Age: 67 Year
  Sex: Male
  Weight: 56.2 kg

DRUGS (2)
  1. CYRAMZA [Suspect]
     Active Substance: RAMUCIRUMAB
     Indication: GASTRIC CANCER RECURRENT
     Dosage: 400 MG, DAY1, DAY15, PER 28 DAYS
     Route: 042
     Dates: start: 20150629, end: 20150817
  2. PACLITAXEL. [Concomitant]
     Active Substance: PACLITAXEL
     Indication: GASTRIC CANCER RECURRENT
     Dosage: 115 MG, OTHER
     Route: 042
     Dates: start: 20150629, end: 20150914

REACTIONS (2)
  - Thrombosis [Recovering/Resolving]
  - Protein urine present [Recovered/Resolved]

NARRATIVE: CASE EVENT DATE: 20150817
